FAERS Safety Report 25548807 (Version 1)
Quarter: 2025Q3

REPORT INFORMATION
  Report Type: Other
  Country: LB (occurrence: LB)
  Receive Date: 20250714
  Receipt Date: 20250714
  Transmission Date: 20251020
  Serious: Yes (Death, Hospitalization)
  Sender: ANI
  Company Number: LB-ANIPHARMA-023521

PATIENT
  Sex: Female

DRUGS (9)
  1. CYCLOPHOSPHAMIDE [Suspect]
     Active Substance: CYCLOPHOSPHAMIDE
     Indication: Rhabdoid tumour
  2. PROPRANOLOL [Concomitant]
     Active Substance: PROPRANOLOL HYDROCHLORIDE
     Indication: Haemangioma congenital
  3. LAROTRECTINIB [Concomitant]
     Active Substance: LAROTRECTINIB
     Indication: Rhabdoid tumour
  4. VINBLASTINE [Concomitant]
     Active Substance: VINBLASTINE
     Indication: Rhabdoid tumour
  5. METHOTREXATE [Concomitant]
     Active Substance: METHOTREXATE
     Indication: Rhabdoid tumour
  6. LAROTRECTINIB [Concomitant]
     Active Substance: LAROTRECTINIB
     Indication: Congenital malignant neoplasm
  7. VINBLASTINE [Concomitant]
     Active Substance: VINBLASTINE
     Indication: Congenital malignant neoplasm
  8. METHOTREXATE [Concomitant]
     Active Substance: METHOTREXATE
     Indication: Congenital malignant neoplasm
  9. CYCLOPHOSPHAMIDE [Suspect]
     Active Substance: CYCLOPHOSPHAMIDE
     Indication: Congenital malignant neoplasm

REACTIONS (1)
  - Drug ineffective [Fatal]
